FAERS Safety Report 8590540-6 (Version None)
Quarter: 2012Q3

REPORT INFORMATION
  Report Type: 
  Country: None (occurrence: None)
  Receive Date: 20120813
  Receipt Date: 20120807
  Transmission Date: 20120928
  Serious: Yes (Hospitalization)
  Sender: FDA-Public Use
  Company Number: US-PFIZER INC-2012193083

PATIENT

DRUGS (1)
  1. GLUCOTROL [Suspect]

REACTIONS (3)
  - RENAL FAILURE [None]
  - BLOOD TRIGLYCERIDES INCREASED [None]
  - DEHYDRATION [None]
